FAERS Safety Report 4335974-0 (Version None)
Quarter: 2004Q1

REPORT INFORMATION
  Report Type: 
  Country: None (occurrence: None)
  Receive Date: 20040329
  Receipt Date: 20031223
  Transmission Date: 20041129
  Serious: No
  Sender: FDA-Public Use
  Company Number: USA031255309

PATIENT
  Age: 14 Year
  Sex: Male
  Weight: 45 kg

DRUGS (1)
  1. STRATTERA [Suspect]
     Indication: ATTENTION DEFICIT/HYPERACTIVITY DISORDER
     Dosage: 80 MG/DAY
     Dates: start: 20030601

REACTIONS (5)
  - ABNORMAL DREAMS [None]
  - ANXIETY [None]
  - NOCTURNAL EMISSION [None]
  - OBSESSIVE-COMPULSIVE DISORDER [None]
  - PRESCRIBED OVERDOSE [None]
